FAERS Safety Report 20453160 (Version 2)
Quarter: 2022Q1

REPORT INFORMATION
  Report Type: Spontaneous
  Country: US (occurrence: US)
  Receive Date: 20220210
  Receipt Date: 20220228
  Transmission Date: 20220424
  Serious: Yes (Other)
  Sender: FDA-Public Use
  Company Number: US-LUPIN PHARMACEUTICALS INC.-2022-01636

PATIENT
  Age: 72 Year
  Sex: Female
  Weight: 65.76 kg

DRUGS (2)
  1. GAVILYTE NOS [Suspect]
     Active Substance: POLYETHYLENE GLYCOL 3350\POTASSIUM CHLORIDE\SODIUM BICARBONATE\SODIUM CHLORIDE\SODIUM SULFATE
     Indication: Bowel preparation
     Dosage: UNK
     Route: 065
  2. GAVILYTE NOS [Suspect]
     Active Substance: POLYETHYLENE GLYCOL 3350\POTASSIUM CHLORIDE\SODIUM BICARBONATE\SODIUM CHLORIDE\SODIUM SULFATE
     Dosage: 4 LITER (SHE TOOK ENTIRE 4 LITERS OF GAVILYTE)
     Route: 065
     Dates: start: 2018

REACTIONS (2)
  - Hypertension [Recovered/Resolved]
  - Feeling cold [Unknown]

NARRATIVE: CASE EVENT DATE: 20180101
